FAERS Safety Report 13931153 (Version 1)
Quarter: 2017Q3

REPORT INFORMATION
  Report Type: Spontaneous
  Country: US (occurrence: US)
  Receive Date: 20170902
  Receipt Date: 20170902
  Transmission Date: 20171127
  Serious: Yes (Disabling)
  Sender: FDA-Public Use
  Company Number: US-ROCHE-GNE324094

PATIENT
  Age: 14 Year
  Sex: Male

DRUGS (2)
  1. ALVESCO [Concomitant]
     Active Substance: CICLESONIDE
     Route: 065
  2. NUTROPIN [Suspect]
     Active Substance: SOMATROPIN
     Indication: GROWTH HORMONE DEFICIENCY
     Route: 058
     Dates: start: 20110213, end: 20110906

REACTIONS (1)
  - Epiphysiolysis [Recovered/Resolved]

NARRATIVE: CASE EVENT DATE: 201109
